FAERS Safety Report 7850814-0 (Version None)
Quarter: 2011Q4

REPORT INFORMATION
  Report Type: 
  Country: None (occurrence: None)
  Receive Date: 20111021
  Receipt Date: 20111008
  Transmission Date: 20120403
  Serious: Yes (Other)
  Sender: FDA-Public Use
  Company Number: 2011AP002354

PATIENT
  Age: 39 Year
  Sex: Female

DRUGS (2)
  1. CETIRIZINE [Suspect]
     Indication: NASOPHARYNGITIS
     Dosage: 10 MG;QD
  2. CETIRIZINE [Suspect]
     Indication: CONJUNCTIVITIS
     Dosage: 10 MG;QD

REACTIONS (7)
  - HEPATITIS TOXIC [None]
  - URTICARIA [None]
  - ARTHRALGIA [None]
  - DEFICIENCY OF BILE SECRETION [None]
  - BLOOD TRIGLYCERIDES INCREASED [None]
  - BLOOD CHOLESTEROL INCREASED [None]
  - HEPATOTOXICITY [None]
